FAERS Safety Report 18570864 (Version 1)
Quarter: 2020Q4

REPORT INFORMATION
  Report Type: Spontaneous
  Country: US (occurrence: US)
  Receive Date: 20201202
  Receipt Date: 20201202
  Transmission Date: 20210114
  Serious: No
  Sender: FDA-Public Use
  Company Number: US-ROCHE-2673890

PATIENT
  Sex: Male
  Weight: 27.24 kg

DRUGS (5)
  1. DIAZEPAM. [Concomitant]
     Active Substance: DIAZEPAM
  2. KEPPRA [Concomitant]
     Active Substance: LEVETIRACETAM
  3. APTIOM [Concomitant]
     Active Substance: ESLICARBAZEPINE ACETATE
  4. FAMOTIDINE. [Concomitant]
     Active Substance: FAMOTIDINE
  5. EVRYSDI [Suspect]
     Active Substance: RISDIPLAM
     Indication: PRODUCT USED FOR UNKNOWN INDICATION
     Route: 065

REACTIONS (1)
  - Diarrhoea [Unknown]
